FAERS Safety Report 8247142 (Version 3)
Quarter: 2014Q1

REPORT INFORMATION
  Report Type: Spontaneous
  Country: US (occurrence: US)
  Receive Date: 20111116
  Receipt Date: 20140204
  Transmission Date: 20141002
  Serious: Yes (Death, Hospitalization, Other)
  Sender: FDA-Public Use
  Company Number: US-JNJFOC-20111104642

PATIENT
  Sex: Male
  Weight: 83.92 kg

DRUGS (9)
  1. DURAGESIC [Suspect]
     Indication: SURGERY
     Route: 062
  2. DURAGESIC [Suspect]
     Indication: SURGERY
     Route: 062
  3. DURAGESIC [Suspect]
     Indication: SURGERY
     Route: 062
  4. DURAGESIC [Suspect]
     Indication: SURGERY
     Route: 062
  5. DURAGESIC [Suspect]
     Indication: SURGERY
     Dosage: 2 X 1 100 UG/HR PATCH
     Route: 062
     Dates: end: 201102
  6. UNSPECIFIED FENTANYL TRANSDERMAL SYSTEM [Suspect]
     Indication: SURGERY
     Route: 062
     Dates: end: 20110226
  7. UNSPECIFIED FENTANYL TRANSDERMAL SYSTEM [Suspect]
     Indication: SURGERY
     Route: 062
  8. OXYCONTIN [Concomitant]
     Indication: SURGERY
     Route: 048
  9. OXYCODONE [Concomitant]
     Indication: SURGERY
     Route: 048

REACTIONS (10)
  - Cerebrovascular accident [Fatal]
  - Intracranial haematoma [Fatal]
  - Cardiac disorder [Recovered/Resolved]
  - Withdrawal syndrome [Not Recovered/Not Resolved]
  - Blood glucose decreased [Not Recovered/Not Resolved]
  - Echocardiogram abnormal [Unknown]
  - Agitation [Unknown]
  - Product quality issue [Unknown]
  - Incorrect dose administered [Unknown]
  - Product quality issue [Unknown]
